FAERS Safety Report 7777303-6 (Version None)
Quarter: 2011Q3

REPORT INFORMATION
  Report Type: 
  Country: None (occurrence: None)
  Receive Date: 20110922
  Receipt Date: 20110908
  Transmission Date: 20111222
  Serious: Yes (Life-Threatening)
  Sender: FDA-Public Use
  Company Number: THQ2011A05644

PATIENT
  Age: 63 Year
  Sex: Male

DRUGS (4)
  1. CONDROSAN DURAS 60 CAPSULAS (CHONROITIN SULFATE) [Concomitant]
  2. FISAVABCE CINORUNUDIS 4(COLECALCIFEROL, ALENDRONATE SODIUM) [Concomitant]
  3. LANSOPRAZOLE [Suspect]
     Indication: WRIST SURGERY
     Dosage: (1 D) PER ORAL
     Route: 048
     Dates: start: 20091229
  4. BOSPORON 4 MG (LORNOXICAM) [Suspect]
     Indication: WRIST SURGERY
     Dosage: (1 D) PER ORAL
     Route: 048
     Dates: start: 20091229

REACTIONS (3)
  - EAR HAEMORRHAGE [None]
  - GINGIVAL BLEEDING [None]
  - THROMBOCYTOPENIA [None]
